FAERS Safety Report 14669185 (Version 1)
Quarter: 2018Q1

REPORT INFORMATION
  Report Type: Spontaneous
  Country: US (occurrence: US)
  Receive Date: 20180322
  Receipt Date: 20180322
  Transmission Date: 20180509
  Serious: Yes (Hospitalization)
  Sender: FDA-Public Use
  Company Number: US-TEVA-2018-US-872988

PATIENT
  Age: 54 Year
  Sex: Male

DRUGS (1)
  1. BUDESONIDE. [Suspect]
     Active Substance: BUDESONIDE
     Indication: COLITIS MICROSCOPIC
     Route: 065

REACTIONS (3)
  - Shigella infection [Recovering/Resolving]
  - Enterocolitis infectious [Recovering/Resolving]
  - Escherichia infection [Recovering/Resolving]
